FAERS Safety Report 16102292 (Version 1)
Quarter: 2019Q1

REPORT INFORMATION
  Report Type: Spontaneous
  Country: US (occurrence: US)
  Receive Date: 20190321
  Receipt Date: 20190321
  Transmission Date: 20190418
  Serious: Yes (Other)
  Sender: FDA-Public Use
  Company Number: US-TEVA-2019-US-1025020

PATIENT
  Age: 72 Year
  Sex: Female

DRUGS (1)
  1. FLUTICASONE PROPIONATE AND SALMETEROL XINOFOATE TEVA [Suspect]
     Active Substance: FLUTICASONE PROPIONATE\SALMETEROL XINAFOATE
     Indication: ASTHMA
     Dosage: FORM STRENGTH: FLUTICASONE PROPIONATE 55 MCG AND SALMETEROL XINOFOATE 14 MCG.
     Route: 055
     Dates: start: 201903

REACTIONS (12)
  - Middle insomnia [Not Recovered/Not Resolved]
  - Drug effect incomplete [Unknown]
  - Choking [Not Recovered/Not Resolved]
  - Cough [Not Recovered/Not Resolved]
  - Throat irritation [Not Recovered/Not Resolved]
  - Psychomotor hyperactivity [Unknown]
  - Throat clearing [Not Recovered/Not Resolved]
  - Feeling abnormal [Unknown]
  - Nervousness [Not Recovered/Not Resolved]
  - Tension [Not Recovered/Not Resolved]
  - Product substitution issue [Unknown]
  - Asthenia [Unknown]

NARRATIVE: CASE EVENT DATE: 201903
